FAERS Safety Report 4532754-8 (Version None)
Quarter: 2004Q4

REPORT INFORMATION
  Report Type: 
  Country: None (occurrence: None)
  Receive Date: 20041206
  Receipt Date: 20040929
  Transmission Date: 20050328
  Serious: No
  Sender: FDA-Public Use
  Company Number: USA040979766

PATIENT
  Age: 46 Year
  Sex: Female

DRUGS (3)
  1. CYMBALTA [Suspect]
     Indication: DEPRESSION
     Dosage: 60 MG DAY
     Dates: start: 20040920, end: 20040901
  2. LAXIS (FUROSEMIDE) [Concomitant]
  3. AMBIEN [Concomitant]

REACTIONS (1)
  - URINARY RETENTION [None]
